FAERS Safety Report 9689241 (Version 1)
Quarter: 2013Q4

REPORT INFORMATION
  Report Type: Report from Study
  Country: FR (occurrence: FR)
  Receive Date: 20131114
  Receipt Date: 20131114
  Transmission Date: 20140711
  Serious: Yes (Hospitalization)
  Sender: FDA-Public Use
  Company Number: FR-TEVA-443805ISR

PATIENT
  Age: 71 Year
  Sex: Female
  Weight: 91 kg

DRUGS (10)
  1. MYOCET [Suspect]
     Route: 042
     Dates: start: 20130702, end: 20130702
  2. CYCLOPHOSPHAMIDE [Suspect]
     Route: 042
     Dates: start: 20130702, end: 20130702
  3. CERIS [Concomitant]
     Indication: LOWER URINARY TRACT SYMPTOMS
     Route: 048
  4. CRESTOR [Concomitant]
     Indication: HYPERLIPIDAEMIA
     Route: 048
  5. EPINITRIL [Concomitant]
     Route: 048
  6. ZOLOFT [Concomitant]
     Indication: DEPRESSION
     Route: 048
  7. HYTACAND [Concomitant]
     Indication: HYPERTENSION
     Route: 048
  8. ATENOLOL [Concomitant]
     Route: 048
  9. KARDEGIC [Concomitant]
     Indication: PLATELET AGGREGATION
     Route: 048
  10. ADENURIC [Concomitant]
     Indication: GOUT

REACTIONS (1)
  - Aplasia [Recovered/Resolved]
